FAERS Safety Report 9269126 (Version 1)
Quarter: 2013Q2

REPORT INFORMATION
  Report Type: Report from Study
  Country: DE (occurrence: DE)
  Receive Date: 20130503
  Receipt Date: 20130503
  Transmission Date: 20140414
  Serious: Yes (Hospitalization, Other)
  Sender: FDA-Public Use
  Company Number: DE-ROCHE-1219623

PATIENT
  Age: 36 Year
  Sex: Female
  Weight: 86.8 kg

DRUGS (1)
  1. METHOXY POLYETHYLENE GLYCOL-EPOETIN BETA [Suspect]
     Indication: NEPHROGENIC ANAEMIA
     Route: 058
     Dates: start: 20120111

REACTIONS (4)
  - Epistaxis [Recovered/Resolved]
  - Pneumonia [Unknown]
  - Haemorrhagic anaemia [Recovered/Resolved]
  - Medication error [Unknown]
